FAERS Safety Report 9028593 (Version 2)
Quarter: 2013Q1

REPORT INFORMATION
  Report Type: Spontaneous
  Country: JP (occurrence: JP)
  Receive Date: 20130124
  Receipt Date: 20130130
  Transmission Date: 20140127
  Serious: No
  Sender: FDA-Public Use
  Company Number: JP-GLAXOSMITHKLINE-B0861399A

PATIENT
  Age: 14 Year
  Sex: Female

DRUGS (4)
  1. IMIGRAN [Suspect]
     Indication: MIGRAINE
     Dosage: 50MG PER DAY
     Route: 048
     Dates: start: 20130111
  2. SOMATROPIN [Concomitant]
     Indication: BLOOD GROWTH HORMONE
     Dates: start: 201001
  3. CALONAL [Concomitant]
     Indication: ANALGESIC THERAPY
     Route: 048
  4. GASTER D [Concomitant]
     Indication: GASTROINTESTINAL DISORDER
     Route: 048

REACTIONS (2)
  - Palpitations [Recovered/Resolved]
  - Dizziness [Recovered/Resolved]
